FAERS Safety Report 5269817-8 (Version None)
Quarter: 2007Q1

REPORT INFORMATION
  Report Type: 
  Country: None (occurrence: None)
  Receive Date: 20070320
  Receipt Date: 20070312
  Transmission Date: 20070707
  Serious: Yes (Other)
  Sender: FDA-Public Use
  Company Number: 2006UW20512

PATIENT
  Age: 82 Year
  Sex: Male
  Weight: 54.9 kg

DRUGS (14)
  1. ENTOCORT [Suspect]
     Indication: COELIAC DISEASE
     Route: 048
     Dates: start: 20060301, end: 20061201
  2. ENTOCORT [Suspect]
     Route: 048
     Dates: start: 20061201
  3. TPN [Concomitant]
  4. METOPROLOL SUCCINATE [Concomitant]
  5. CAPOTEN [Concomitant]
  6. VITAMIN D [Concomitant]
     Dosage: DOUBLE DOSES
  7. VITAMIN E [Concomitant]
  8. VITAMIN B-12 [Concomitant]
     Dosage: LOW DOSE
  9. MULTI-VITAMIN [Concomitant]
  10. VITAMIN A [Concomitant]
  11. LEVOTHYROXINE SODIUM [Concomitant]
  12. AMLODIPINE [Concomitant]
  13. OMEPRAZOLE [Concomitant]
  14. IMODIUM [Concomitant]

REACTIONS (5)
  - CATARACT [None]
  - FATIGUE [None]
  - MEMORY IMPAIRMENT [None]
  - SKIN ATROPHY [None]
  - SWELLING FACE [None]
